FAERS Safety Report 6092078-7 (Version None)
Quarter: 2009Q1

REPORT INFORMATION
  Report Type: 
  Country: None (occurrence: None)
  Receive Date: 20090219
  Receipt Date: 20090114
  Transmission Date: 20090719
  Serious: No
  Sender: FDA-Public Use
  Company Number: WAES 0901USA01721

PATIENT
  Age: 56 Year
  Sex: Female

DRUGS (6)
  1. JANUVIA [Suspect]
     Indication: DIABETES MELLITUS
     Dosage: 100 MG/DAILY/PO
     Route: 048
     Dates: start: 20081201, end: 20081213
  2. AVANDAMET [Concomitant]
  3. GLUCOPHAGE [Concomitant]
  4. LIPITOR [Concomitant]
  5. ZOCOR [Concomitant]
  6. [THERAPY UNSPECIFIED] [Concomitant]

REACTIONS (2)
  - CHEST PAIN [None]
  - COUGH [None]
